FAERS Safety Report 8860456 (Version 2)
Quarter: 2012Q4

REPORT INFORMATION
  Report Type: 
  Country: GB (occurrence: GB)
  Receive Date: 20121025
  Receipt Date: 20121106
  Transmission Date: 20130627
  Serious: Yes (Other)
  Sender: FDA-Public Use
  Company Number: GB-JNJFOC-20121010805

PATIENT

DRUGS (5)
  1. DOXORUBICIN [Suspect]
     Indication: SARCOMA
     Dosage: for 20 min at day 1
     Route: 042
  2. DOXORUBICIN [Suspect]
     Indication: SARCOMA
     Dosage: for 20 min at day 1
     Route: 042
  3. IFOSFAMIDE [Suspect]
     Indication: SARCOMA
     Dosage: for 24 hours at day 1
     Route: 042
  4. MESNA [Suspect]
     Indication: SARCOMA
     Dosage: for 24 hours at day 1
     Route: 042
  5. LENOGRASTIM [Suspect]
     Indication: SARCOMA
     Dosage: for 14 days, starting 24 hours after completing ifosfamide
     Route: 058

REACTIONS (2)
  - Haemorrhage [Unknown]
  - Off label use [Unknown]
